FAERS Safety Report 5839446-3 (Version None)
Quarter: 2008Q3

REPORT INFORMATION
  Report Type: 
  Country: None (occurrence: None)
  Receive Date: 20080807
  Receipt Date: 20080422
  Transmission Date: 20090109
  Serious: Yes (Death)
  Sender: FDA-Public Use
  Company Number: 2008000847

PATIENT
  Age: 61 Year
  Sex: Female

DRUGS (8)
  1. ERLOTINIB (ERLOTINIB HCI) (TABLET) (ERLOTINIB HCOI) [Suspect]
     Indication: LUNG ADENOCARCINOMA
     Dosage: 150 MG, QD, ORAL
     Route: 048
     Dates: start: 20080311, end: 20080323
  2. ROPION (FLURBIPROFEN AXETIL) [Suspect]
     Dates: start: 20080308, end: 20080329
  3. MAGNESIUM OXIDE (MAGNESIUM OXIDE) [Concomitant]
  4. MORPHINE [Concomitant]
  5. MAXIPIME [Concomitant]
  6. MIDAZOLAM HCL [Concomitant]
  7. CEFIPIME [Concomitant]
  8. MIDAZOLAM HCL [Concomitant]

REACTIONS (6)
  - ANAEMIA [None]
  - BLOOD BILIRUBIN INCREASED [None]
  - HAEMOPTYSIS [None]
  - METASTASES TO BONE [None]
  - RASH [None]
  - TUMOUR HAEMORRHAGE [None]
